FAERS Safety Report 8202224-4 (Version None)
Quarter: 2012Q1

REPORT INFORMATION
  Report Type: 
  Country: None (occurrence: None)
  Receive Date: 20120308
  Receipt Date: 20120229
  Transmission Date: 20120608
  Serious: Yes (Other)
  Sender: FDA-Public Use
  Company Number: AUR-APL-2011-04698

PATIENT
  Age: 47 Year
  Sex: Male

DRUGS (6)
  1. FLUOXETINE [Suspect]
     Indication: OBSESSIVE-COMPULSIVE DISORDER
     Dosage: 40 MG (40 MG, 1 IN 1 D)
     Dates: start: 20090701
  2. HYOSCINE HBR HYT [Concomitant]
  3. OMEPRAZOLE [Concomitant]
  4. CLOZAPINE [Suspect]
     Indication: SCHIZOPHRENIA
     Dosage: SEE IMAGE
     Route: 048
     Dates: start: 20110909
  5. CLOZAPINE [Suspect]
     Indication: SCHIZOPHRENIA
     Dosage: SEE IMAGE
     Route: 048
     Dates: start: 20110728
  6. CLOZAPINE [Suspect]
     Indication: SCHIZOPHRENIA
     Dosage: SEE IMAGE
     Route: 048
     Dates: start: 20110809

REACTIONS (13)
  - CONSTIPATION [None]
  - DECREASED APPETITE [None]
  - BLOOD ALKALINE PHOSPHATASE INCREASED [None]
  - C-REACTIVE PROTEIN INCREASED [None]
  - LETHARGY [None]
  - DIARRHOEA [None]
  - COUGH [None]
  - PROTEIN TOTAL DECREASED [None]
  - IMMUNODEFICIENCY [None]
  - HYPERHIDROSIS [None]
  - WEIGHT DECREASED [None]
  - ABDOMINAL PAIN [None]
  - GAMMA-GLUTAMYLTRANSFERASE INCREASED [None]
